FAERS Safety Report 16454621 (Version 1)
Quarter: 2019Q2

REPORT INFORMATION
  Report Type: Spontaneous
  Country: US (occurrence: US)
  Receive Date: 20190619
  Receipt Date: 20190619
  Transmission Date: 20190711
  Serious: No
  Sender: FDA-Public Use
  Company Number: US-ROCHE-2296106

PATIENT
  Age: 39 Year
  Sex: Female
  Weight: 130.3 kg

DRUGS (2)
  1. PLAVIX [Concomitant]
     Active Substance: CLOPIDOGREL BISULFATE
     Indication: INFLAMMATION
     Dosage: ONGOING: YES
     Route: 065
     Dates: start: 201810
  2. ACTEMRA [Suspect]
     Active Substance: TOCILIZUMAB
     Indication: INFLAMMATION
     Dosage: ONGOING: YES. 162MG/0.9ML
     Route: 058
     Dates: start: 201801

REACTIONS (3)
  - Visual impairment [Unknown]
  - Syringe issue [Unknown]
  - Underdose [Unknown]

NARRATIVE: CASE EVENT DATE: 20190325
